FAERS Safety Report 4631021-1 (Version None)
Quarter: 2005Q2

REPORT INFORMATION
  Report Type: 
  Country: None (occurrence: None)
  Receive Date: 20050406
  Receipt Date: 20050406
  Transmission Date: 20051028
  Serious: Yes (Other)
  Sender: FDA-Public Use
  Company Number: None

PATIENT
  Sex: Male
  Weight: 81.6475 kg

DRUGS (3)
  1. RISPERDAL [Suspect]
     Indication: BIPOLAR DISORDER
     Dosage: 2 MG PO DAILY
     Route: 048
     Dates: start: 20030601, end: 20031023
  2. EFFEXOR [Concomitant]
  3. UNSPECIFIED :MOOD  STABILIZER^ [Concomitant]

REACTIONS (6)
  - DYSPNOEA [None]
  - FEELING ABNORMAL [None]
  - HYPERHIDROSIS [None]
  - PALPITATIONS [None]
  - PANIC ATTACK [None]
  - URINARY INCONTINENCE [None]
